FAERS Safety Report 6241869-8 (Version None)
Quarter: 2009Q2

REPORT INFORMATION
  Report Type: 
  Country: None (occurrence: None)
  Receive Date: 20090623
  Receipt Date: 20090611
  Transmission Date: 20091009
  Serious: Yes (Hospitalization)
  Sender: FDA-Public Use
  Company Number: US-PFIZER INC-2009226345

PATIENT
  Sex: Male

DRUGS (1)
  1. GEODON [Suspect]

REACTIONS (4)
  - HYPERSOMNIA [None]
  - MENTAL DISORDER [None]
  - MUSCLE TWITCHING [None]
  - TREMOR [None]
